FAERS Safety Report 8827347 (Version 1)
Quarter: 2012Q4

REPORT INFORMATION
  Report Type: 
  Country: GB (occurrence: GB)
  Receive Date: 20121008
  Receipt Date: 20121008
  Transmission Date: 20130627
  Serious: Yes (Life-Threatening, Hospitalization, Other)
  Sender: FDA-Public Use
  Company Number: GB-TEVA-361899ISR

PATIENT
  Age: 66 Year
  Sex: Male
  Weight: 120 kg

DRUGS (6)
  1. METFORMIN [Suspect]
     Indication: TYPE 2 DIABETES MELLITUS
     Route: 048
     Dates: start: 19990722, end: 20110910
  2. LISINOPRIL [Suspect]
     Indication: HYPERTENSION
     Route: 048
     Dates: start: 20070503, end: 20120910
  3. ASPIRIN [Concomitant]
  4. BENDROFLUMETHIAZID [Concomitant]
  5. SIMVASTATIN [Concomitant]
  6. OMEPRAZOL [Concomitant]

REACTIONS (7)
  - Lactic acidosis [Recovered/Resolved]
  - Syncope [Unknown]
  - Hypotension [Unknown]
  - Renal impairment [Unknown]
  - Diarrhoea [Unknown]
  - Metabolic acidosis [Unknown]
  - Blood lactic acid increased [Unknown]
